FAERS Safety Report 20327017 (Version 1)
Quarter: 2022Q1

REPORT INFORMATION
  Report Type: Spontaneous
  Country: US (occurrence: None)
  Receive Date: 20220111
  Receipt Date: 20220111
  Transmission Date: 20220423
  Serious: Yes (Hospitalization)
  Sender: FDA-Public Use
  Company Number: None

PATIENT
  Age: 56 Year
  Sex: Male
  Weight: 112.95 kg

DRUGS (14)
  1. CASIRIVIMAB\IMDEVIMAB [Suspect]
     Active Substance: CASIRIVIMAB\IMDEVIMAB
     Indication: COVID-19
     Dosage: OTHER FREQUENCY : ONCE;?
     Route: 058
     Dates: start: 20211228, end: 20211228
  2. Dexamethasone 6mg [Concomitant]
     Dates: start: 20220104
  3. TYLENOL [Concomitant]
     Active Substance: ACETAMINOPHEN
  4. ATORVASTATIN [Concomitant]
     Active Substance: ATORVASTATIN
  5. benzonatate 200mg capsule [Concomitant]
     Dates: start: 20220105
  6. bisoprolol 5mg [Concomitant]
  7. FLEXERIL [Concomitant]
     Active Substance: CYCLOBENZAPRINE HYDROCHLORIDE
  8. Voltaren 1% topical [Concomitant]
  9. flecainide 100mg [Concomitant]
  10. zestoretic 10-12.5mg [Concomitant]
  11. nitrostat 0.4mg SL PRN [Concomitant]
  12. OMEPRAZOLE [Concomitant]
     Active Substance: OMEPRAZOLE
  13. ondansetron OCT 8mg [Concomitant]
  14. XARELTO [Concomitant]
     Active Substance: RIVAROXABAN

REACTIONS (6)
  - Acute respiratory failure [None]
  - Chest discomfort [None]
  - Dyspnoea exertional [None]
  - Dyspnoea [None]
  - Chest discomfort [None]
  - Pyrexia [None]

NARRATIVE: CASE EVENT DATE: 20220110
